FAERS Safety Report 4657387-4 (Version None)
Quarter: 2005Q2

REPORT INFORMATION
  Report Type: 
  Country: None (occurrence: None)
  Receive Date: 20050405
  Receipt Date: 20040828
  Transmission Date: 20051028
  Serious: Yes (Other)
  Sender: FDA-Public Use
  Company Number: 2004053979

PATIENT
  Age: 46 Year
  Sex: Female

DRUGS (6)
  1. GEODON [Suspect]
     Indication: ANXIETY
     Dates: start: 20040501, end: 20040701
  2. GEODON [Suspect]
     Indication: DEPRESSION
     Dates: start: 20040501, end: 20040701
  3. LIPITOR [Suspect]
     Indication: HYPERLIPIDAEMIA
     Dosage: 80 MG (80MG, 1 IN 1 D), ORAL
     Route: 048
     Dates: start: 20031025, end: 20040601
  4. TRAZODONE HCL [Concomitant]
  5. FEXOFENADINE HYDROCHLORIDE [Concomitant]
  6. PERPHENAZINE [Concomitant]

REACTIONS (13)
  - ALANINE AMINOTRANSFERASE INCREASED [None]
  - BLOOD CHOLESTEROL INCREASED [None]
  - BLOOD CREATINE PHOSPHOKINASE INCREASED [None]
  - BLOOD CREATINE PHOSPHOKINASE MB INCREASED [None]
  - BLOOD GLUCOSE INCREASED [None]
  - BLOOD PHOSPHORUS DECREASED [None]
  - BLOOD TRIGLYCERIDES INCREASED [None]
  - DRUG INTERACTION [None]
  - EPSTEIN-BARR VIRUS ANTIBODY POSITIVE [None]
  - HIGH DENSITY LIPOPROTEIN DECREASED [None]
  - LOW DENSITY LIPOPROTEIN INCREASED [None]
  - PARVOVIRUS B19 SEROLOGY POSITIVE [None]
  - URINE PROTEIN, QUANTITATIVE [None]
